FAERS Safety Report 9509635 (Version 2)
Quarter: 2013Q3

REPORT INFORMATION
  Report Type: Spontaneous
  Country: US (occurrence: US)
  Receive Date: 20130909
  Receipt Date: 20130909
  Transmission Date: 20140515
  Serious: No
  Sender: FDA-Public Use
  Company Number: US-BRISTOL-MYERS SQUIBB COMPANY-18906545

PATIENT
  Age: 45 Year
  Sex: Female

DRUGS (4)
  1. ABILIFY TABS 15 MG [Suspect]
     Indication: BIPOLAR DISORDER
     Dosage: REDUCED TO 10MG.?AT BEDTIME.
     Route: 048
     Dates: start: 20120503, end: 20130604
  2. KLONOPIN [Concomitant]
  3. ADDERALL [Concomitant]
  4. TRAZODONE HCL [Concomitant]

REACTIONS (2)
  - Dysphagia [Unknown]
  - Impaired gastric emptying [Unknown]
